FAERS Safety Report 15418061 (Version 3)
Quarter: 2018Q4

REPORT INFORMATION
  Report Type: Report from Study
  Country: US (occurrence: US)
  Receive Date: 20180924
  Receipt Date: 20181023
  Transmission Date: 20190204
  Serious: Yes (Hospitalization)
  Sender: FDA-Public Use
  Company Number: US-EISAI MEDICAL RESEARCH-EC-2018-044254

PATIENT
  Age: 54 Year
  Sex: Female
  Weight: 95 kg

DRUGS (20)
  1. HYDROCHLOROTHIAZIDE. [Concomitant]
     Active Substance: HYDROCHLOROTHIAZIDE
  2. OMEPRAZOLE. [Concomitant]
     Active Substance: OMEPRAZOLE
  3. IBUPROFEN. [Concomitant]
     Active Substance: IBUPROFEN
  4. LENVATINIB [Suspect]
     Active Substance: LENVATINIB
     Dosage: BLINDED DOSE- DOSE UNKNOWN
     Route: 048
     Dates: start: 20180905, end: 20180905
  5. ESTRADIOL. [Concomitant]
     Active Substance: ESTRADIOL
  6. FLUTICASONE PROPIONATE. [Concomitant]
     Active Substance: FLUTICASONE PROPIONATE
  7. AMLODIPINE [Concomitant]
     Active Substance: AMLODIPINE BESYLATE
  8. LENVATINIB [Suspect]
     Active Substance: LENVATINIB
     Dosage: BLINDED DOSE- DOSE UNKNOWN
     Route: 048
     Dates: start: 20180922, end: 20181004
  9. DIAZEPAM. [Concomitant]
     Active Substance: DIAZEPAM
  10. METFORMIN [Concomitant]
     Active Substance: METFORMIN HYDROCHLORIDE
  11. LENVATINIB [Suspect]
     Active Substance: LENVATINIB
     Indication: PAPILLARY THYROID CANCER
     Dosage: BLINDED DOSE
     Route: 048
     Dates: start: 20180814, end: 20180816
  12. LEVOTHYROXINE. [Concomitant]
     Active Substance: LEVOTHYROXINE
  13. LISINOPRIL. [Concomitant]
     Active Substance: LISINOPRIL
  14. SIMETHICONE (DIMETHICONE) [Concomitant]
     Active Substance: DIMETHICONE
  15. LENVATINIB [Suspect]
     Active Substance: LENVATINIB
     Dosage: BLINDED DOSE- DOSE UNKNOWN
     Route: 048
     Dates: start: 20181006, end: 20181007
  16. MULTIVITAMIN [Concomitant]
     Active Substance: VITAMINS
  17. LENVATINIB [Suspect]
     Active Substance: LENVATINIB
     Dosage: BLINDED DOSE- DOSE REDUCED (DOSE UNKNOWN)
     Route: 048
     Dates: start: 20180823, end: 20180823
  18. LENVATINIB [Suspect]
     Active Substance: LENVATINIB
     Dosage: BLINDED DOSE- DOSE UNKNOWN
     Route: 048
     Dates: start: 20180825, end: 20180902
  19. LENVATINIB [Suspect]
     Active Substance: LENVATINIB
     Dosage: BLINDED DOSE- DOSE UNKNOWN
     Route: 048
     Dates: start: 20180908, end: 20180908
  20. LENVATINIB [Suspect]
     Active Substance: LENVATINIB
     Dosage: BLINDED DOSE- DOSE UNKNOWN
     Route: 048
     Dates: start: 20180910, end: 20180920

REACTIONS (1)
  - Non-cardiac chest pain [Recovered/Resolved]

NARRATIVE: CASE EVENT DATE: 20180816
